FAERS Safety Report 8805211 (Version 1)
Quarter: 2012Q4

REPORT INFORMATION
  Report Type: Spontaneous
  Country: DK (occurrence: None)
  Receive Date: 20120917
  Receipt Date: 20120917
  Transmission Date: 20130627
  Serious: Yes (Hospitalization)
  Sender: FDA-Public Use
  Company Number: 2012MA011185

PATIENT
  Age: 54 Year
  Sex: Female

DRUGS (10)
  1. DIAZEPAM TABLETS USP (PUREPAC) [Suspect]
     Route: 054
     Dates: start: 20120608, end: 20120608
  2. VAGIFEM [Concomitant]
  3. LEVAXIN [Concomitant]
  4. QUETIAPINE (ACTAVIS) [Concomitant]
  5. THERALENE [Concomitant]
  6. OXASCAND [Concomitant]
  7. STILNOCT [Concomitant]
  8. OMEPRAZOLE [Concomitant]
  9. LAMOTRIGINE [Concomitant]
  10. MIRTAZAPINE [Concomitant]

REACTIONS (1)
  - Respiratory depression [None]
